FAERS Safety Report 21483356 (Version 2)
Quarter: 2022Q4

REPORT INFORMATION
  Report Type: Spontaneous
  Country: IT (occurrence: IT)
  Receive Date: 20221020
  Receipt Date: 20221025
  Transmission Date: 20230112
  Serious: Yes (Hospitalization, Other)
  Sender: FDA-Public Use
  Company Number: IT-MINISAL02-888175

PATIENT
  Age: 67 Year
  Sex: Male
  Weight: 92 kg

DRUGS (6)
  1. METFORMIN [Suspect]
     Active Substance: METFORMIN HYDROCHLORIDE
     Indication: Type 2 diabetes mellitus
     Dosage: 850 MILLIGRAM, ONCE A DAY (850 MGX 1VOLTA /DIE LA SERA)
     Route: 048
     Dates: start: 20210101, end: 20220930
  2. METFORMIN [Suspect]
     Active Substance: METFORMIN HYDROCHLORIDE
     Dosage: 1000 MILLIGRAM, ONCE A DAY (1000MG X 1VOLTA/DIE AL MATTINO)
     Route: 048
     Dates: start: 20210101, end: 20220930
  3. ESOMEPRAZOLE [Concomitant]
     Active Substance: ESOMEPRAZOLE
     Indication: Oesophagitis
     Dosage: 40 MILLIGRAM, ONCE A DAY (40MG X 1VOLTA/DIE)
     Route: 048
  4. FUROSEMIDE [Concomitant]
     Active Substance: FUROSEMIDE
     Indication: Hypertension
     Dosage: 25 MILLIGRAM, TWO TIMES A DAY (25MGX  2 VOLTE/DIE)
     Route: 048
  5. INDERAL [Concomitant]
     Active Substance: PROPRANOLOL HYDROCHLORIDE
     Indication: Hypertension
     Dosage: 20 MILLIGRAM, TWO TIMES A DAY ( (20MGX 2VOLTE/DIE)
     Route: 048
  6. Luvion [Concomitant]
     Indication: Ascites
     Dosage: 100 MILLIGRAM, ONCE A DAY (100 MGX 1VOLTA/DIE)
     Route: 048

REACTIONS (1)
  - Acute kidney injury [Not Recovered/Not Resolved]

NARRATIVE: CASE EVENT DATE: 20220926
